FAERS Safety Report 10293313 (Version 1)
Quarter: 2014Q3

REPORT INFORMATION
  Report Type: Spontaneous
  Country: US (occurrence: US)
  Receive Date: 20140710
  Receipt Date: 20140710
  Transmission Date: 20150326
  Serious: Yes (Hospitalization)
  Sender: FDA-Public Use
  Company Number: US-GLAXOSMITHKLINE-A1079676A

PATIENT
  Age: 55 Year
  Sex: Female

DRUGS (2)
  1. NORCO [Concomitant]
     Active Substance: ACETAMINOPHEN\HYDROCODONE BITARTRATE
  2. LAMOTRIGINE. [Suspect]
     Active Substance: LAMOTRIGINE
     Indication: EPILEPSY
     Dosage: 25MG VARIABLE DOSE
     Route: 048
     Dates: start: 201307, end: 201312

REACTIONS (10)
  - Constipation [Unknown]
  - Urinary tract disorder [Unknown]
  - Clumsiness [Unknown]
  - Balance disorder [Unknown]
  - Hot flush [Unknown]
  - Dry skin [Not Recovered/Not Resolved]
  - Somnolence [Unknown]
  - Investigation [Unknown]
  - Headache [Unknown]
  - Dizziness [Unknown]

NARRATIVE: CASE EVENT DATE: 2013
